FAERS Safety Report 23015157 (Version 2)
Quarter: 2023Q4

REPORT INFORMATION
  Report Type: Spontaneous
  Country: US (occurrence: US)
  Receive Date: 20231002
  Receipt Date: 20231005
  Transmission Date: 20240110
  Serious: Yes (Hospitalization)
  Sender: FDA-Public Use
  Company Number: US-PFIZER INC-PV202300158541

PATIENT
  Sex: Male

DRUGS (5)
  1. ZOCOR [Suspect]
     Active Substance: SIMVASTATIN
     Route: 048
  2. KEYTRUDA [Concomitant]
     Active Substance: PEMBROLIZUMAB
     Indication: Renal cancer
     Dosage: 200 DOSAGE FORM, Q3W
     Dates: start: 20201230
  3. INLYTA [Concomitant]
     Active Substance: AXITINIB
     Indication: Renal cancer
     Dosage: 3 MILLIGRAM (3 TABLETS), BID; QUANTITY: 180
     Route: 048
     Dates: start: 20201230, end: 20230410
  4. INLYTA [Concomitant]
     Active Substance: AXITINIB
     Dosage: 3 MILLIGRAM (3 TABLETS), BID; QUANTITY: 180
     Route: 048
     Dates: start: 20230906
  5. VIAGRA [Concomitant]
     Active Substance: SILDENAFIL CITRATE
     Dosage: USE: USE AS DIRECTED
     Dates: start: 20211111

REACTIONS (2)
  - Hospitalisation [Unknown]
  - Liver function test increased [Unknown]

NARRATIVE: CASE EVENT DATE: 20230112
